FAERS Safety Report 16047434 (Version 3)
Quarter: 2019Q3

REPORT INFORMATION
  Report Type: Spontaneous
  Country: AU (occurrence: AU)
  Receive Date: 20190307
  Receipt Date: 20190816
  Transmission Date: 20191004
  Serious: Yes (Hospitalization, Other)
  Sender: FDA-Public Use
  Company Number: AU-ASTRAZENECA-2018SF30701

PATIENT
  Age: 74 Year
  Sex: Female
  Weight: 48.8 kg

DRUGS (5)
  1. PLAQUENIL [Concomitant]
     Active Substance: HYDROXYCHLOROQUINE SULFATE
     Indication: SYSTEMIC LUPUS ERYTHEMATOSUS
     Dosage: 200.0MG UNKNOWN
     Route: 048
  2. PREDNISOLONE. [Concomitant]
     Active Substance: PREDNISOLONE
     Indication: LUPUS-LIKE SYNDROME
  3. TAGRISSO [Suspect]
     Active Substance: OSIMERTINIB
     Indication: NON-SMALL CELL LUNG CANCER
     Dosage: 80.0MG UNKNOWN
     Route: 048
     Dates: start: 20180927, end: 20181001
  4. TAGRISSO [Suspect]
     Active Substance: OSIMERTINIB
     Indication: NON-SMALL CELL LUNG CANCER
     Dosage: 40.0MG UNKNOWN
     Route: 048
     Dates: start: 20181010
  5. TAGRISSO [Suspect]
     Active Substance: OSIMERTINIB
     Indication: NON-SMALL CELL LUNG CANCER
     Dosage: 40.0MG UNKNOWN
     Route: 048
     Dates: start: 20190305

REACTIONS (9)
  - Abdominal pain [Recovered/Resolved]
  - Pelvic fluid collection [Unknown]
  - Rash [Recovering/Resolving]
  - Periorbital oedema [Recovering/Resolving]
  - Hyponatraemia [Recovered/Resolved]
  - Pleural effusion [Unknown]
  - Paraneoplastic syndrome [Unknown]
  - Pancreatitis [Unknown]
  - Oedema peripheral [Recovering/Resolving]

NARRATIVE: CASE EVENT DATE: 20180928
